FAERS Safety Report 6998149-2 (Version None)
Quarter: 2010Q3

REPORT INFORMATION
  Report Type: 
  Country: None (occurrence: None)
  Receive Date: 20100920
  Receipt Date: 20100205
  Transmission Date: 20110219
  Serious: Yes (Other)
  Sender: FDA-Public Use
  Company Number: US-ASTRAZENECA-2009UW16456

PATIENT
  Sex: Male
  Weight: 82.1 kg

DRUGS (9)
  1. SEROQUEL [Suspect]
     Route: 048
  2. SEROQUEL [Suspect]
     Route: 048
     Dates: start: 20050103
  3. ZYPREXA [Concomitant]
  4. LORAZEPAM [Concomitant]
     Dates: start: 20041220
  5. METOCLOPRAMIDE [Concomitant]
     Dates: start: 20050204
  6. HYDROCODON/APAP [Concomitant]
     Dates: start: 20041102
  7. DOXEPIN HCL [Concomitant]
     Dates: start: 20050103
  8. CELEBREX [Concomitant]
     Dates: start: 20050103
  9. GABAPENTIN [Concomitant]
     Dates: start: 20050103

REACTIONS (8)
  - AMMONIA [None]
  - ANXIETY [None]
  - DEPRESSION [None]
  - DIABETES MELLITUS INADEQUATE CONTROL [None]
  - DIABETIC KETOACIDOSIS [None]
  - LIMB REDUCTION DEFECT [None]
  - LIVER INJURY [None]
  - TYPE 2 DIABETES MELLITUS [None]
